FAERS Safety Report 7935047-1 (Version None)
Quarter: 2011Q4

REPORT INFORMATION
  Report Type: 
  Country: None (occurrence: None)
  Receive Date: 20111117
  Receipt Date: 20111103
  Transmission Date: 20120403
  Serious: Yes (Hospitalization, Disabling, Other)
  Sender: FDA-Public Use
  Company Number: 2011MA016044

PATIENT
  Sex: Male

DRUGS (8)
  1. BETAPACE [Concomitant]
  2. DIGOXIN [Suspect]
     Indication: CARDIAC DISORDER
     Dosage: 0.125 MG;QD;PO
     Route: 048
     Dates: start: 20060301, end: 20080731
  3. IMDUR [Concomitant]
  4. ISOSORBIDE DINITRATE [Concomitant]
  5. PLAVIX [Concomitant]
  6. SIMVASTATIN [Concomitant]
  7. ZOCOR [Concomitant]
  8. LOVENOX [Concomitant]

REACTIONS (7)
  - PAIN [None]
  - CARDIAC DISORDER [None]
  - ECONOMIC PROBLEM [None]
  - ATRIAL FIBRILLATION [None]
  - PALPITATIONS [None]
  - MULTIPLE INJURIES [None]
  - ANXIETY [None]
